FAERS Safety Report 9405151 (Version 3)
Quarter: 2013Q4

REPORT INFORMATION
  Report Type: Spontaneous
  Country: FR (occurrence: FR)
  Receive Date: 20130717
  Receipt Date: 20131223
  Transmission Date: 20140711
  Serious: Yes (Hospitalization)
  Sender: FDA-Public Use
  Company Number: FR-PFIZER INC-2013207668

PATIENT
  Age: 83 Year
  Sex: Female

DRUGS (13)
  1. CORDARONE [Suspect]
     Indication: ATRIAL FIBRILLATION
     Dosage: 200 MG ONCE A DAY (5D/W)
     Route: 048
     Dates: start: 201110, end: 20130624
  2. ALDACTONE [Concomitant]
     Dosage: UNK
  3. BI-TILDIEM LP [Concomitant]
     Dosage: UNK
  4. COUMADINE [Concomitant]
     Dosage: UNK
  5. DIFFU K [Concomitant]
     Dosage: UNK
  6. INEXIUM [Concomitant]
  7. LASILIX [Concomitant]
     Dosage: UNK
  8. MIRTAZAPINE [Concomitant]
     Dosage: UNK
  9. SERESTA [Concomitant]
     Dosage: UNK
  10. TAHOR [Concomitant]
     Dosage: UNK
  11. ZOPICLONE [Concomitant]
     Dosage: UNK
  12. LANTUS [Concomitant]
     Dosage: UNK
  13. DUROGESIC [Concomitant]
     Dosage: UNK

REACTIONS (1)
  - Hyperthyroidism [Recovered/Resolved]
